FAERS Safety Report 5340300-4 (Version None)
Quarter: 2007Q2

REPORT INFORMATION
  Report Type: 
  Country: None (occurrence: None)
  Receive Date: 20070531
  Receipt Date: 20070423
  Transmission Date: 20071010
  Serious: Yes (Life-Threatening)
  Sender: FDA-Public Use
  Company Number: DE-AMGEN-US226766

PATIENT
  Age: 38 Year
  Sex: Female
  Weight: 59 kg

DRUGS (3)
  1. ENBREL [Suspect]
     Indication: RHEUMATOID ARTHRITIS
     Route: 058
     Dates: start: 20010601, end: 20050401
  2. ENBREL [Suspect]
     Route: 058
     Dates: start: 20040501, end: 20050401
  3. ENBREL [Suspect]
     Route: 058
     Dates: start: 20010601, end: 20020701

REACTIONS (2)
  - ABORTION SPONTANEOUS [None]
  - DRUG EXPOSURE DURING PREGNANCY [None]
